FAERS Safety Report 9781615 (Version 2)
Quarter: 2014Q2

REPORT INFORMATION
  Report Type: Spontaneous
  Country: US (occurrence: US)
  Receive Date: 20131224
  Receipt Date: 20140422
  Transmission Date: 20141212
  Serious: Yes (Hospitalization)
  Sender: FDA-Public Use
  Company Number: US-ACORDA-ACO_100887_2013

PATIENT
  Age: 63 Year
  Sex: Female
  Weight: 68.27 kg

DRUGS (1)
  1. AMPYRA [Suspect]
     Indication: GAIT DISTURBANCE
     Dosage: 10 MG, BID
     Route: 048
     Dates: start: 20131115

REACTIONS (2)
  - Multiple sclerosis relapse [Recovered/Resolved]
  - Pruritus generalised [Recovered/Resolved]
